FAERS Safety Report 23249326 (Version 2)
Quarter: 2024Q3

REPORT INFORMATION
  Report Type: Report from Study
  Country: US (occurrence: US)
  Receive Date: 20231201
  Receipt Date: 20240810
  Transmission Date: 20241016
  Serious: Yes (Other)
  Sender: ABBVIE
  Company Number: US-ABBVIE-5432849

PATIENT
  Sex: Male

DRUGS (1)
  1. IMBRUVICA [Suspect]
     Active Substance: IBRUTINIB
     Indication: Mantle cell lymphoma
     Route: 048
     Dates: start: 20180820

REACTIONS (3)
  - Chemotherapy [Unknown]
  - Neuropathy peripheral [Unknown]
  - Rash papular [Unknown]

NARRATIVE: CASE EVENT DATE: 20180101
